FAERS Safety Report 9197828 (Version 5)
Quarter: 2015Q2

REPORT INFORMATION
  Report Type: Report from Study
  Country: PL (occurrence: PL)
  Receive Date: 20130328
  Receipt Date: 20150630
  Transmission Date: 20150821
  Serious: Yes (Hospitalization, Other)
  Sender: FDA-Public Use
  Company Number: PL-ACTELION-A-CH2013-81171

PATIENT
  Age: 3 Year
  Sex: Female
  Weight: 12 kg

DRUGS (9)
  1. DIGOXIN. [Concomitant]
     Active Substance: DIGOXIN
     Dosage: UNK
     Dates: start: 20121004
  2. FUROSEMIDE. [Concomitant]
     Active Substance: FUROSEMIDE
     Dosage: UNK
     Dates: start: 201201
  3. HYDROCHLOROTHIAZIDE. [Concomitant]
     Active Substance: HYDROCHLOROTHIAZIDE
     Dosage: UNK
     Dates: start: 201201, end: 201212
  4. SPIRONOLACTONE. [Concomitant]
     Active Substance: SPIRONOLACTONE
     Dosage: UNK
     Dates: start: 201201
  5. ACENOCOUMAROL [Concomitant]
     Active Substance: ACENOCOUMAROL
     Dosage: UNK
     Dates: start: 201201
  6. SILDENAFIL. [Concomitant]
     Active Substance: SILDENAFIL
     Dosage: UNK
     Dates: start: 201111
  7. VENTAVIS [Suspect]
     Active Substance: ILOPROST
     Indication: PULMONARY ARTERIAL HYPERTENSION
     Dosage: UNK
     Route: 055
     Dates: start: 20121030, end: 20121105
  8. TRACLEER [Suspect]
     Active Substance: BOSENTAN\BOSENTAN MONOHYDRATE
     Indication: PULMONARY ARTERIAL HYPERTENSION
     Dosage: 32.5 MG, BID
     Route: 048
     Dates: start: 20110909
  9. TRACLEER [Suspect]
     Active Substance: BOSENTAN\BOSENTAN MONOHYDRATE
     Dosage: 7 MG, BID
     Route: 048
     Dates: start: 20110805, end: 20110908

REACTIONS (18)
  - Disease progression [Recovered/Resolved]
  - Abdominal pain upper [Unknown]
  - Chest pain [Recovered/Resolved]
  - Ventricular arrhythmia [Recovered/Resolved]
  - Aortic anastomosis [Unknown]
  - Viral upper respiratory tract infection [Unknown]
  - Oxygen saturation decreased [Recovered/Resolved]
  - Hepatomegaly [Recovered/Resolved]
  - N-terminal prohormone brain natriuretic peptide increased [Recovered/Resolved]
  - Dyspnoea [Recovered/Resolved]
  - Cyanosis [Recovered/Resolved]
  - General physical health deterioration [Unknown]
  - Decreased appetite [Unknown]
  - Tachypnoea [Recovered/Resolved]
  - Irritability [Unknown]
  - Pulmonary arterial hypertension [Recovered/Resolved]
  - Cardiac failure [Recovered/Resolved]
  - Low cardiac output syndrome [Recovered/Resolved]

NARRATIVE: CASE EVENT DATE: 201207
